FAERS Safety Report 9159602 (Version 1)
Quarter: 2013Q1

REPORT INFORMATION
  Report Type: Spontaneous
  Country: US (occurrence: None)
  Receive Date: 20130312
  Receipt Date: 20130312
  Transmission Date: 20140127
  Serious: Yes (Hospitalization)
  Sender: FDA-Public Use
  Company Number: None

PATIENT
  Age: 15 Year
  Sex: Female
  Weight: 50.35 kg

DRUGS (1)
  1. FLUOXETINE [Suspect]
     Indication: ANXIETY
     Dosage: 12.5 ML ONCE DAILY PO
     Route: 048
     Dates: start: 20130226, end: 20130308

REACTIONS (3)
  - Mood altered [None]
  - Self-injurious ideation [None]
  - Intentional self-injury [None]
